FAERS Safety Report 10552233 (Version 2)
Quarter: 2014Q4

REPORT INFORMATION
  Report Type: Spontaneous
  Country: US (occurrence: US)
  Receive Date: 20141029
  Receipt Date: 20141202
  Transmission Date: 20150529
  Serious: Yes (Life-Threatening, Hospitalization, Other)
  Sender: FDA-Public Use
  Company Number: US-ABBVIE-14P-163-1301443-00

PATIENT
  Sex: Male

DRUGS (2)
  1. ANDROGEL [Suspect]
     Active Substance: TESTOSTERONE
     Indication: BLOOD TESTOSTERONE DECREASED
     Route: 061
     Dates: start: 200206, end: 200910
  2. TESTIM [Suspect]
     Active Substance: TESTOSTERONE
     Indication: BLOOD TESTOSTERONE DECREASED
     Route: 065
     Dates: start: 200910, end: 201306

REACTIONS (8)
  - Cerebrovascular accident [Unknown]
  - Emotional distress [Unknown]
  - Economic problem [Unknown]
  - Impaired work ability [Unknown]
  - Anxiety [Unknown]
  - Transient ischaemic attack [Unknown]
  - Pain [Unknown]
  - Physical disability [Unknown]

NARRATIVE: CASE EVENT DATE: 20121023
